FAERS Safety Report 8971101 (Version 2)
Quarter: 2012Q4

REPORT INFORMATION
  Report Type: 
  Country: JP (occurrence: JP)
  Receive Date: 20121217
  Receipt Date: 20121226
  Transmission Date: 20130627
  Serious: Yes (Other)
  Sender: FDA-Public Use
  Company Number: JP-PFIZER INC-2012317017

PATIENT

DRUGS (1)
  1. SOLU-MEDROL [Suspect]
     Indication: INTERSTITIAL PNEUMONIA
     Dosage: 1000 mg for an hour
     Route: 042

REACTIONS (3)
  - Respiratory distress [Unknown]
  - Oxygen saturation decreased [Unknown]
  - Hyperhidrosis [Unknown]
